FAERS Safety Report 5271038-X (Version None)
Quarter: 2007Q1

REPORT INFORMATION
  Report Type: 
  Country: None (occurrence: None)
  Receive Date: 20061219
  Receipt Date: 20060913
  Transmission Date: 20070707
  Serious: Yes (Hospitalization, Other)
  Sender: FDA-Public Use
  Company Number: US-JNJFOC-20060701802

PATIENT
  Age: 32 Year
  Sex: Male
  Weight: 73.7 kg

DRUGS (1)
  1. ORTHO EVRA [Suspect]
     Indication: CONTRACEPTION
     Dosage: 1 DOSE(S), 3 IN 4 WEEK
     Dates: start: 20041201, end: 20050116

REACTIONS (2)
  - PULMONARY EMBOLISM [None]
  - URINARY TRACT INFECTION [None]
